FAERS Safety Report 10463327 (Version 1)
Quarter: 2014Q3

REPORT INFORMATION
  Report Type: Spontaneous
  Country: FR (occurrence: FR)
  Receive Date: 20140919
  Receipt Date: 20140919
  Transmission Date: 20150326
  Serious: Yes (Hospitalization)
  Sender: FDA-Public Use
  Company Number: FR-BRISTOL-MYERS SQUIBB COMPANY-21393947

PATIENT
  Age: 73 Year
  Sex: Male

DRUGS (15)
  1. HUMALOG [Concomitant]
     Active Substance: INSULIN LISPRO
  2. INIPOMP [Concomitant]
     Active Substance: PANTOPRAZOLE SODIUM
  3. LYRICA [Concomitant]
     Active Substance: PREGABALIN
  4. NORSET [Concomitant]
     Active Substance: MIRTAZAPINE
  5. LANTUS [Concomitant]
     Active Substance: INSULIN GLARGINE
  6. COUMADINE [Suspect]
     Active Substance: WARFARIN SODIUM
     Indication: ATRIAL FLUTTER
     Route: 048
     Dates: end: 20140304
  7. GLYCERYL TRINITRATE [Concomitant]
     Active Substance: NITROGLYCERIN
  8. BACTRIM [Concomitant]
     Active Substance: SULFAMETHOXAZOLE\TRIMETHOPRIM
  9. KARDEGIC [Suspect]
     Active Substance: ASPIRIN LYSINE
  10. ZELITREX [Concomitant]
     Active Substance: VALACYCLOVIR HYDROCHLORIDE
  11. LASILIX [Concomitant]
     Active Substance: FUROSEMIDE
  12. RIVOTRIL [Concomitant]
     Active Substance: CLONAZEPAM
  13. IKOREL [Concomitant]
     Active Substance: NICORANDIL
  14. OROCAL [Concomitant]
     Active Substance: CALCIUM CARBONATE
  15. ORACILLINE [Concomitant]
     Active Substance: PENICILLIN V

REACTIONS (3)
  - Haemarthrosis [Recovered/Resolved]
  - Jaundice [Recovered/Resolved]
  - International normalised ratio increased [Recovered/Resolved]

NARRATIVE: CASE EVENT DATE: 20140304
